FAERS Safety Report 25031358 (Version 3)
Quarter: 2025Q2

REPORT INFORMATION
  Report Type: Spontaneous
  Country: JP (occurrence: JP)
  Receive Date: 20250303
  Receipt Date: 20250422
  Transmission Date: 20250717
  Serious: Yes (Death)
  Sender: BAYER HEALTHCARE PHARMACEUTICALS INC.
  Company Number: JP-BAYER-2025A029373

PATIENT
  Age: 85 Year
  Sex: Female

DRUGS (1)
  1. ADEMPAS [Suspect]
     Active Substance: RIOCIGUAT
     Dosage: 1.5 MG, TID
     Route: 048
     Dates: end: 202410

REACTIONS (1)
  - Pneumonia aspiration [Fatal]
